FAERS Safety Report 22247571 (Version 1)
Quarter: 2023Q2

REPORT INFORMATION
  Report Type: Spontaneous
  Country: HR (occurrence: HR)
  Receive Date: 20230425
  Receipt Date: 20230425
  Transmission Date: 20230722
  Serious: Yes (Death, Hospitalization, Other)
  Sender: FDA-Public Use
  Company Number: HR-BoehringerIngelheim-2023-BI-233314

PATIENT
  Age: 76 Year
  Sex: Male

DRUGS (1)
  1. OFEV [Suspect]
     Active Substance: NINTEDANIB
     Indication: Pulmonary fibrosis
     Dates: start: 202211

REACTIONS (4)
  - Death [Fatal]
  - Respiratory failure [Unknown]
  - Back pain [Unknown]
  - COVID-19 [Unknown]

NARRATIVE: CASE EVENT DATE: 20221201
